FAERS Safety Report 6625722-3 (Version None)
Quarter: 2010Q1

REPORT INFORMATION
  Report Type: 
  Country: None (occurrence: None)
  Receive Date: 20100310
  Receipt Date: 20100304
  Transmission Date: 20100710
  Serious: Yes (Hospitalization)
  Sender: FDA-Public Use
  Company Number: FR-BAYER-201018275GPV

PATIENT
  Age: 61 Year
  Sex: Male

DRUGS (1)
  1. NEXAVAR [Suspect]
     Indication: HEPATIC NEOPLASM MALIGNANT
     Dates: start: 20100101

REACTIONS (5)
  - ASTHENIA [None]
  - DECREASED APPETITE [None]
  - DISORIENTATION [None]
  - TREMOR [None]
  - VOMITING [None]
